FAERS Safety Report 6743002-2 (Version None)
Quarter: 2010Q2

REPORT INFORMATION
  Report Type: 
  Country: None (occurrence: None)
  Receive Date: 20100527
  Receipt Date: 20100518
  Transmission Date: 20101027
  Serious: No
  Sender: FDA-Public Use
  Company Number: US-BIOGENIDEC-2010BI016868

PATIENT
  Sex: Female

DRUGS (1)
  1. TYSABRI [Suspect]
     Indication: MULTIPLE SCLEROSIS
     Route: 042
     Dates: start: 20090811, end: 20100401

REACTIONS (6)
  - AGGRESSION [None]
  - CHILLS [None]
  - CONTUSION [None]
  - OEDEMA PERIPHERAL [None]
  - RASH [None]
  - TENDERNESS [None]
